FAERS Safety Report 17818924 (Version 1)
Quarter: 2020Q2

REPORT INFORMATION
  Report Type: Report from Study
  Country: DE (occurrence: DE)
  Receive Date: 20200522
  Receipt Date: 20200522
  Transmission Date: 20200714
  Serious: Yes (Hospitalization)
  Sender: FDA-Public Use
  Company Number: DE-BAXTER-2020BAX010747

PATIENT
  Age: 80 Year
  Sex: Female
  Weight: 96 kg

DRUGS (54)
  1. PREDNERSONE [PREDNISOLONE] [Suspect]
     Active Substance: PREDNISOLONE
     Route: 048
     Dates: start: 20181008, end: 20181012
  2. RIXATHON [Suspect]
     Active Substance: RITUXIMAB
     Dosage: (50 (ML/MIN) FROM 10:00 TO 12:30)
     Route: 041
     Dates: start: 20180821, end: 20180821
  3. CYCLOPHOSPHAMIDE. [Suspect]
     Active Substance: CYCLOPHOSPHAMIDE
     Dosage: (INFUSION RATE 16.6 (ML/MIN) FROM 12:20 TO 13:25)
     Route: 041
     Dates: start: 20181009, end: 20181009
  4. LANTUS [Concomitant]
     Active Substance: INSULIN GLARGINE
     Indication: DIABETES MELLITUS
     Route: 058
     Dates: start: 1998
  5. METOCLOPRAMIDE. [Concomitant]
     Active Substance: METOCLOPRAMIDE
     Indication: PROPHYLAXIS
     Route: 048
     Dates: start: 20180721
  6. DOXIL [Suspect]
     Active Substance: DOXORUBICIN HYDROCHLORIDE
     Indication: DIFFUSE LARGE B-CELL LYMPHOMA
     Dosage: (INFUSION RATE 2.0 (ML/MIN) FROM 18:05 TO 20:20)
     Route: 041
     Dates: start: 20180720, end: 20180720
  7. DOXIL [Suspect]
     Active Substance: DOXORUBICIN HYDROCHLORIDE
     Dosage: (INFUSION RATE 2.0 (ML/MIN) FROM 10:26 TO 13:05)
     Route: 041
     Dates: start: 20180919, end: 20180919
  8. PREDNERSONE [PREDNISOLONE] [Suspect]
     Active Substance: PREDNISOLONE
     Indication: DIFFUSE LARGE B-CELL LYMPHOMA
     Route: 048
     Dates: start: 20180919, end: 20180923
  9. PREDNERSONE [PREDNISOLONE] [Suspect]
     Active Substance: PREDNISOLONE
     Route: 048
     Dates: start: 20180821, end: 20180825
  10. RIXATHON [Suspect]
     Active Substance: RITUXIMAB
     Indication: DIFFUSE LARGE B-CELL LYMPHOMA
     Route: 041
     Dates: start: 20181105
  11. RIXATHON [Suspect]
     Active Substance: RITUXIMAB
     Dosage: (50 (ML/MIN) FROM 10:30 TO 12:20)
     Route: 041
     Dates: start: 20180807, end: 20180807
  12. RIXATHON [Suspect]
     Active Substance: RITUXIMAB
     Route: 041
     Dates: start: 20181022, end: 20181022
  13. CYCLOPHOSPHAMIDE. [Suspect]
     Active Substance: CYCLOPHOSPHAMIDE
     Indication: DIFFUSE LARGE B-CELL LYMPHOMA
     Dosage: FROM 13:15 TO 14:20
     Route: 041
     Dates: start: 20180919, end: 20180919
  14. CYCLOPHOSPHAMIDE. [Suspect]
     Active Substance: CYCLOPHOSPHAMIDE
     Dosage: (INFUSION RATE 16.6 (ML/MIN) FROM 11:55 TO 13:00)
     Route: 041
     Dates: start: 20180905, end: 20180905
  15. METOPROLOL. [Concomitant]
     Active Substance: METOPROLOL
     Indication: HYPERTENSION
     Route: 048
     Dates: start: 1998
  16. SIMVASTATIN. [Concomitant]
     Active Substance: SIMVASTATIN
     Indication: PROPHYLAXIS
     Route: 048
     Dates: start: 2018
  17. ACICLOVIR [Concomitant]
     Active Substance: ACYCLOVIR
     Indication: PRODUCT USED FOR UNKNOWN INDICATION
     Route: 048
     Dates: start: 20181008, end: 20181009
  18. PREDNERSONE [PREDNISOLONE] [Suspect]
     Active Substance: PREDNISOLONE
     Route: 048
     Dates: start: 20181105, end: 20181109
  19. PREDNERSONE [PREDNISOLONE] [Suspect]
     Active Substance: PREDNISOLONE
     Route: 048
     Dates: start: 20181022, end: 20181026
  20. PANTOPRAZOL [Concomitant]
     Active Substance: PANTOPRAZOLE SODIUM
     Indication: PROPHYLAXIS
     Route: 048
     Dates: start: 2018
  21. MESNA. [Concomitant]
     Active Substance: MESNA
     Indication: PROPHYLAXIS
     Route: 042
     Dates: start: 20180720
  22. RANITIDIN [Concomitant]
     Active Substance: RANITIDINE HYDROCHLORIDE
     Indication: PROPHYLAXIS
     Route: 042
     Dates: start: 20180719
  23. PREDNERSONE [PREDNISOLONE] [Suspect]
     Active Substance: PREDNISOLONE
     Route: 048
     Dates: start: 20180807, end: 20180811
  24. RIXATHON [Suspect]
     Active Substance: RITUXIMAB
     Dosage: (50 (ML/MIN) FROM10:05 TO 12:40)
     Route: 041
     Dates: start: 20180918, end: 20180918
  25. RIXATHON [Suspect]
     Active Substance: RITUXIMAB
     Dosage: (50 (ML/MIN) FROM 09:50 TO 12:20)
     Route: 041
     Dates: start: 20181008, end: 20181008
  26. VINCRISTINE [Suspect]
     Active Substance: VINCRISTINE
     Dosage: FROM 17:45 TO 18:03) FROM 09:15 TO 09:30)
     Route: 041
     Dates: start: 20180822, end: 20180822
  27. ASPIRIN. [Concomitant]
     Active Substance: ASPIRIN
     Indication: PROPHYLAXIS
     Route: 048
     Dates: start: 1998
  28. COTRIMOXAZOLE [Concomitant]
     Active Substance: SULFAMETHOXAZOLE\TRIMETHOPRIM
     Indication: PROPHYLAXIS
     Route: 048
     Dates: start: 20180723
  29. DOXIL [Suspect]
     Active Substance: DOXORUBICIN HYDROCHLORIDE
     Dosage: (INFUSION RATE 2.0 (ML/MIN) FROM 09:53 TO 11:45)
     Route: 041
     Dates: start: 20180822, end: 20180822
  30. DOXIL [Suspect]
     Active Substance: DOXORUBICIN HYDROCHLORIDE
     Dosage: (INFUSION RATE 2.0 (ML/MIN) FROM 09:55 TO 12:10)
     Route: 041
     Dates: start: 20180808, end: 20180808
  31. VINCRISTINE [Suspect]
     Active Substance: VINCRISTINE
     Indication: DIFFUSE LARGE B-CELL LYMPHOMA
     Dosage: (INFUSION RATE 6.6 (ML/MIN) FROM 09:10 TO 09:25)
     Route: 041
     Dates: start: 20180905, end: 20180905
  32. VINCRISTINE [Suspect]
     Active Substance: VINCRISTINE
     Dosage: (INFUSION RATE 6.6 (ML/MIN) FROM 09:30 TO 09:45)
     Route: 041
     Dates: start: 20181009, end: 20181009
  33. PREDNISOLONE. [Concomitant]
     Active Substance: PREDNISOLONE
     Indication: PROPHYLAXIS
     Route: 042
     Dates: start: 20180719
  34. LERCANIDIPINE [Concomitant]
     Active Substance: LERCANIDIPINE
     Indication: HYPERTENSION
     Route: 048
     Dates: start: 1998
  35. CANDESARTAN. [Concomitant]
     Active Substance: CANDESARTAN
     Indication: HYPERTENSION
     Route: 048
     Dates: start: 1998
  36. RIXATHON [Suspect]
     Active Substance: RITUXIMAB
     Dosage: (50 (ML/MIN) FROM 09:55 TO 12:30)
     Route: 041
     Dates: start: 20180904, end: 20180904
  37. CYCLOPHOSPHAMIDE. [Suspect]
     Active Substance: CYCLOPHOSPHAMIDE
     Dosage: (INFUSION RATE 16.6 (ML/MIN) FROM 12:20 TO 13:20)
     Route: 041
     Dates: start: 20190808, end: 20190808
  38. PARACETAMOL [Concomitant]
     Active Substance: ACETAMINOPHEN
     Indication: PROPHYLAXIS
     Route: 048
     Dates: start: 20180719
  39. DOXIL [Suspect]
     Active Substance: DOXORUBICIN HYDROCHLORIDE
     Route: 041
     Dates: start: 20181009, end: 20181009
  40. PREDNERSONE [PREDNISOLONE] [Suspect]
     Active Substance: PREDNISOLONE
     Route: 048
     Dates: start: 20180719, end: 20180723
  41. PREDNERSONE [PREDNISOLONE] [Suspect]
     Active Substance: PREDNISOLONE
     Route: 048
     Dates: start: 20180905, end: 20180909
  42. RIXATHON [Suspect]
     Active Substance: RITUXIMAB
     Route: 041
     Dates: start: 20180719, end: 20180719
  43. VINCRISTINE [Suspect]
     Active Substance: VINCRISTINE
     Dosage: (INFUSION RATE 6.6 (ML/MIN) FROM 17:45 TO 18:03)
     Route: 041
     Dates: start: 20180720, end: 20180720
  44. VINCRISTINE [Suspect]
     Active Substance: VINCRISTINE
     Dosage: (INFUSION RATE 6.6 (ML/MIN) FROM 10:10 TO 09:25)
     Route: 041
     Dates: start: 20180919, end: 20180919
  45. PEGFILGRASTIM [Concomitant]
     Active Substance: PEGFILGRASTIM
     Indication: PROPHYLAXIS
     Route: 058
     Dates: start: 20180722
  46. TORASEMIDE [Concomitant]
     Active Substance: TORSEMIDE
     Indication: HYPERTENSION
     Route: 048
     Dates: start: 1998
  47. DOXIL [Suspect]
     Active Substance: DOXORUBICIN HYDROCHLORIDE
     Dosage: (INFUSION RATE 2.0 (ML/MIN) FROM 09:25 TO 11:30)
     Route: 041
     Dates: start: 20180905, end: 20180905
  48. CYCLOPHOSPHAMIDE. [Suspect]
     Active Substance: CYCLOPHOSPHAMIDE
     Dosage: (INFUSION RATE 16.6 (ML/MIN) FROM 21:04 TO 22:10)
     Route: 041
     Dates: start: 20180720, end: 20180720
  49. CYCLOPHOSPHAMIDE. [Suspect]
     Active Substance: CYCLOPHOSPHAMIDE
     Dosage: (INFUSION RATE 16.6 (ML/MIN) FROM 12:00 TO 13:05)
     Route: 041
     Dates: start: 20180822, end: 20180822
  50. VINCRISTINE [Suspect]
     Active Substance: VINCRISTINE
     Dosage: FROM 09:15 TO 09:30) FROM 09:40 TO 09:55)
     Route: 041
     Dates: start: 20180808, end: 20180808
  51. TILIDIN [Concomitant]
     Active Substance: NALOXONE HYDROCHLORIDE\TILIDINE HYDROCHLORIDE
     Indication: LUMBAR SPINAL STENOSIS
     Route: 048
     Dates: start: 20110901
  52. CLEMASTIN [Concomitant]
     Active Substance: CLEMASTINE
     Indication: PROPHYLAXIS
     Route: 042
     Dates: start: 20180719
  53. CHOLECALCIFEROL [Concomitant]
     Active Substance: CHOLECALCIFEROL
     Indication: PROPHYLAXIS
     Route: 048
     Dates: start: 2018
  54. HYDROCHLOROTHIAZIDE. [Concomitant]
     Active Substance: HYDROCHLOROTHIAZIDE
     Indication: HYPERTENSION
     Route: 048
     Dates: start: 1998

REACTIONS (19)
  - Gamma-glutamyltransferase increased [Not Recovered/Not Resolved]
  - Haemorrhoidal haemorrhage [Recovered/Resolved]
  - Vomiting [Recovered/Resolved]
  - Nausea [Recovered/Resolved]
  - Fatigue [Unknown]
  - Aspartate aminotransferase increased [Recovered/Resolved]
  - Anaemia [Recovered/Resolved]
  - Platelet count decreased [Recovered/Resolved]
  - Gastritis [Not Recovered/Not Resolved]
  - Cystitis [Recovered/Resolved]
  - Peripheral sensory neuropathy [Unknown]
  - Hyperuricaemia [Recovered/Resolved]
  - Hyperglycaemia [Recovered/Resolved]
  - Haemorrhoids [Not Recovered/Not Resolved]
  - Vomiting [Recovered/Resolved]
  - Abdominal pain upper [Recovered/Resolved]
  - Hypoglycaemia [Recovered/Resolved]
  - Alanine aminotransferase increased [Recovered/Resolved]
  - Decreased appetite [Recovered/Resolved]

NARRATIVE: CASE EVENT DATE: 20180804
